FAERS Safety Report 20833974 (Version 2)
Quarter: 2022Q2

REPORT INFORMATION
  Report Type: Spontaneous
  Country: US (occurrence: US)
  Receive Date: 20220516
  Receipt Date: 20220607
  Transmission Date: 20220721
  Serious: No
  Sender: FDA-Public Use
  Company Number: US-PFIZER INC-202200657918

PATIENT
  Age: 61 Year
  Sex: Male

DRUGS (1)
  1. XELJANZ XR [Suspect]
     Active Substance: TOFACITINIB CITRATE
     Dosage: 11 MG
     Dates: start: 20220425

REACTIONS (3)
  - Salivary hypersecretion [Unknown]
  - Dry mouth [Unknown]
  - Dry throat [Unknown]

NARRATIVE: CASE EVENT DATE: 20220401
